FAERS Safety Report 5578527-9 (Version None)
Quarter: 2007Q4

REPORT INFORMATION
  Report Type: 
  Country: None (occurrence: None)
  Receive Date: 20071227
  Receipt Date: 20071221
  Transmission Date: 20080405
  Serious: Yes (Death)
  Sender: FDA-Public Use
  Company Number: 2007SP002101

PATIENT
  Age: 66 Year
  Sex: Male
  Weight: 50 kg

DRUGS (7)
  1. TEMODAL [Suspect]
     Indication: GLIOBLASTOMA MULTIFORME
     Dosage: 150 MG/M2; QD; PO; 150 MG/M2; QD; PO; 150 MG/M2; QD; PO
     Route: 048
     Dates: start: 20061027, end: 20061031
  2. TEMODAL [Suspect]
     Indication: GLIOBLASTOMA MULTIFORME
     Dosage: 150 MG/M2; QD; PO; 150 MG/M2; QD; PO; 150 MG/M2; QD; PO
     Route: 048
     Dates: start: 20061222, end: 20061226
  3. TEMODAL [Suspect]
     Indication: GLIOBLASTOMA MULTIFORME
     Dosage: 150 MG/M2; QD; PO; 150 MG/M2; QD; PO; 150 MG/M2; QD; PO
     Route: 048
     Dates: start: 20070118, end: 20070122
  4. NATULAN (PREV.) [Concomitant]
  5. CYMERIN (PREV.) [Concomitant]
  6. ONCOVIN (PREV.) [Concomitant]
  7. DEPAKENE (CON.) [Concomitant]

REACTIONS (2)
  - DISEASE PROGRESSION [None]
  - INTRACRANIAL TUMOUR HAEMORRHAGE [None]
